FAERS Safety Report 24061981 (Version 3)
Quarter: 2024Q3

REPORT INFORMATION
  Report Type: Report from Study
  Country: CA (occurrence: CA)
  Receive Date: 20240708
  Receipt Date: 20240830
  Transmission Date: 20241016
  Serious: Yes (Hospitalization, Other)
  Sender: ABBVIE
  Company Number: CA-ABBVIE-5830257

PATIENT
  Sex: Female

DRUGS (2)
  1. SKYRIZI [Suspect]
     Active Substance: RISANKIZUMAB-RZAA
     Indication: Crohn^s disease
     Route: 058
     Dates: start: 20230914
  2. SKYRIZI [Suspect]
     Active Substance: RISANKIZUMAB-RZAA
     Route: 058

REACTIONS (13)
  - Intestinal obstruction [Not Recovered/Not Resolved]
  - Dehydration [Unknown]
  - Viral infection [Unknown]
  - Feeding disorder [Unknown]
  - Heart rate increased [Unknown]
  - Blood pressure fluctuation [Unknown]
  - Autonomic failure syndrome [Unknown]
  - Dysphagia [Unknown]
  - Heart rate decreased [Unknown]
  - Coma [Unknown]
  - Autonomic nervous system imbalance [Unknown]
  - Postural orthostatic tachycardia syndrome [Unknown]
  - Fatigue [Unknown]
